FAERS Safety Report 8333067-9 (Version None)
Quarter: 2012Q2

REPORT INFORMATION
  Report Type: 
  Country: None (occurrence: None)
  Receive Date: 20120503
  Receipt Date: 20120426
  Transmission Date: 20120825
  Serious: Yes (Hospitalization)
  Sender: FDA-Public Use
  Company Number: PHHY2012FR032914

PATIENT
  Sex: Female

DRUGS (2)
  1. EXJADE [Suspect]
     Indication: IRON OVERLOAD
     Dosage: UNK UKN, UNK
  2. ARANESP [Concomitant]
     Indication: SIDEROBLASTIC ANAEMIA
     Dosage: 300 UG, EVERY WEEK
     Dates: start: 20060606

REACTIONS (8)
  - DYSPNOEA [None]
  - COUGH [None]
  - ASTHENIA [None]
  - ASTHMA [None]
  - MALNUTRITION [None]
  - OSTEOPOROSIS [None]
  - BONE PAIN [None]
  - BRONCHITIS [None]
